FAERS Safety Report 14595076 (Version 1)
Quarter: 2018Q1

REPORT INFORMATION
  Report Type: Spontaneous
  Country: US (occurrence: US)
  Receive Date: 20180302
  Receipt Date: 20180302
  Transmission Date: 20180509
  Serious: No
  Sender: FDA-Public Use
  Company Number: US-AKORN PHARMACEUTICALS-2017AKN00784

PATIENT
  Age: 25 Year
  Sex: Male
  Weight: 75.74 kg

DRUGS (4)
  1. MYORISAN [Suspect]
     Active Substance: ISOTRETINOIN
     Dosage: 80 MG, 1X/DAY
     Dates: start: 20170501, end: 201705
  2. MYORISAN [Suspect]
     Active Substance: ISOTRETINOIN
     Indication: ACNE CYSTIC
     Dosage: 80 MG, 1X/DAY
     Dates: start: 20170224, end: 2017
  3. NAPROXEN. [Concomitant]
     Active Substance: NAPROXEN
  4. SALICYLIC ACID. [Concomitant]
     Active Substance: SALICYLIC ACID
     Route: 061

REACTIONS (2)
  - Rash [Recovered/Resolved]
  - Skin papilloma [Unknown]

NARRATIVE: CASE EVENT DATE: 201705
